FAERS Safety Report 6966797-1 (Version None)
Quarter: 2010Q3

REPORT INFORMATION
  Report Type: 
  Country: None (occurrence: None)
  Receive Date: 20100906
  Receipt Date: 20100823
  Transmission Date: 20110219
  Serious: Yes (Other)
  Sender: FDA-Public Use
  Company Number: PHHY2010AU55881

PATIENT
  Sex: Female

DRUGS (1)
  1. SYNTOCINON [Suspect]

REACTIONS (2)
  - HYSTERECTOMY [None]
  - POSTPARTUM HAEMORRHAGE [None]
